FAERS Safety Report 7302933-5 (Version None)
Quarter: 2011Q1

REPORT INFORMATION
  Report Type: 
  Country: None (occurrence: None)
  Receive Date: 20110218
  Receipt Date: 20110215
  Transmission Date: 20110831
  Serious: Yes (Life-Threatening)
  Sender: FDA-Public Use
  Company Number: US-GENENTECH-313017

PATIENT
  Sex: Male
  Weight: 102.4 kg

DRUGS (4)
  1. FLOVENT [Concomitant]
     Indication: PRODUCT USED FOR UNKNOWN INDICATION
     Dosage: 220 MG, UNK
  2. XOLAIR [Suspect]
     Indication: ASTHMA
     Dosage: 375 MG, 1/MONTH
     Route: 058
     Dates: start: 20110124, end: 20110124
  3. PREVACID [Concomitant]
     Indication: PRODUCT USED FOR UNKNOWN INDICATION
  4. ALBUTEROL [Concomitant]
     Indication: PRODUCT USED FOR UNKNOWN INDICATION

REACTIONS (3)
  - NAUSEA [None]
  - DIZZINESS [None]
  - ABDOMINAL PAIN [None]
